FAERS Safety Report 13058303 (Version 2)
Quarter: 2018Q3

REPORT INFORMATION
  Report Type: Spontaneous
  Country: FR (occurrence: FR)
  Receive Date: 20161223
  Receipt Date: 20180809
  Transmission Date: 20181010
  Serious: Yes (Hospitalization, Other)
  Sender: FDA-Public Use
  Company Number: FR-BAUSCH-BL-2016-032065

PATIENT
  Age: 45 Year
  Sex: Female

DRUGS (8)
  1. ACICLOVIR [Suspect]
     Active Substance: ACYCLOVIR
     Indication: HERPES ZOSTER
     Dosage: THREE COURSES
     Route: 065
     Dates: start: 201601
  2. ROCEPHINE [Suspect]
     Active Substance: CEFTRIAXONE SODIUM
     Indication: SALPINGITIS
     Route: 065
     Dates: start: 20160915, end: 20160930
  3. AMOXICILLIN/CLAVULANIC ACID [Concomitant]
     Active Substance: AMOXICILLIN\CLAVULANIC ACID
     Indication: PRODUCT USED FOR UNKNOWN INDICATION
     Route: 065
  4. ACICLOVIR [Suspect]
     Active Substance: ACYCLOVIR
     Route: 061
     Dates: start: 201610
  5. NEURONTIN [Concomitant]
     Active Substance: GABAPENTIN
     Indication: PRODUCT USED FOR UNKNOWN INDICATION
     Route: 065
  6. DOXYCYCLINE. [Suspect]
     Active Substance: DOXYCYCLINE
     Indication: SALPINGITIS
     Route: 048
     Dates: start: 20160915, end: 20160930
  7. FLAGYL [Suspect]
     Active Substance: METRONIDAZOLE\METRONIDAZOLE HYDROCHLORIDE
     Indication: SALPINGITIS
     Route: 048
     Dates: start: 20160915, end: 20160930
  8. ACICLOVIR [Suspect]
     Active Substance: ACYCLOVIR
     Indication: ERYTHEMA NODOSUM
     Route: 065
     Dates: start: 201609

REACTIONS (2)
  - Erythema nodosum [Unknown]
  - Lung disorder [Unknown]

NARRATIVE: CASE EVENT DATE: 2016
